FAERS Safety Report 7389036-9 (Version None)
Quarter: 2011Q2

REPORT INFORMATION
  Report Type: 
  Country: None (occurrence: None)
  Receive Date: 20110401
  Receipt Date: 20110321
  Transmission Date: 20111010
  Serious: Yes (Other)
  Sender: FDA-Public Use
  Company Number: US-NAPPMUNDI-DEU-2011-0007132

PATIENT
  Age: 49 Year
  Sex: Male

DRUGS (1)
  1. HYDROMORPHONE HCL [Suspect]
     Indication: PAIN
     Dosage: UNK
     Route: 051

REACTIONS (2)
  - SINUS ARREST [None]
  - BRADYCARDIA [None]
